FAERS Safety Report 8799167 (Version 1)
Quarter: 2012Q4

REPORT INFORMATION
  Report Type: 
  Country: US (occurrence: US)
  Receive Date: 20120920
  Receipt Date: 20120920
  Transmission Date: 20130627
  Serious: No
  Sender: FDA-Public Use
  Company Number: US-ASTRAZENECA-2012SE15239

PATIENT
  Age: 63 Year
  Sex: Male

DRUGS (9)
  1. LISINOPRIL [Suspect]
     Indication: ALCOHOL WITHDRAWAL SYNDROME
     Route: 048
  2. AMITRIL [Suspect]
     Route: 065
  3. SYMBICORT [Concomitant]
     Dosage: 160/4.5 MCG, TWICE A DAY
     Route: 055
  4. TOPROL XL [Concomitant]
     Route: 048
  5. ACCOLATE [Concomitant]
     Route: 048
  6. GABAPENTIN [Concomitant]
  7. MIRTAZAPINE [Concomitant]
     Dosage: 15 MG, ONE TAB AT BED TIME AS NEEDED
  8. TRAMADOL HCL [Concomitant]
     Dosage: 50 MG, 1 TAB THREE TIMES A DAY, AS NEEDED
  9. KEPPRA [Concomitant]

REACTIONS (3)
  - Drug hypersensitivity [Unknown]
  - Off label use [Unknown]
  - Drug name confusion [Unknown]
